FAERS Safety Report 23486525 (Version 3)
Quarter: 2024Q1

REPORT INFORMATION
  Report Type: Report from Study
  Country: US (occurrence: US)
  Receive Date: 20240206
  Receipt Date: 20240228
  Transmission Date: 20240410
  Serious: Yes (Other)
  Sender: FDA-Public Use
  Company Number: US-UCBSA-2024005499

PATIENT
  Age: 30 Year
  Sex: Male

DRUGS (4)
  1. FINTEPLA [Suspect]
     Active Substance: FENFLURAMINE
     Indication: Severe myoclonic epilepsy of infancy
     Dosage: 0.9 ML AM AND 1.4 ML PM X 7 DAYS
     Route: 048
     Dates: start: 20230117
  2. FINTEPLA [Suspect]
     Active Substance: FENFLURAMINE
     Dosage: 0.9 MILLILITER, 2X/DAY (BID) X 7 DAYS
     Route: 048
  3. FINTEPLA [Suspect]
     Active Substance: FENFLURAMINE
     Dosage: 0.4 ML AM AND 0.9 ML PM X 7 DAYS
     Route: 048
  4. FINTEPLA [Suspect]
     Active Substance: FENFLURAMINE
     Dosage: 0.4 MILLILITER, 2X/DAY (BID)
     Route: 048

REACTIONS (3)
  - Generalised tonic-clonic seizure [Not Recovered/Not Resolved]
  - Product use issue [Unknown]
  - Drug ineffective [Unknown]

NARRATIVE: CASE EVENT DATE: 20240130
